FAERS Safety Report 16706946 (Version 1)
Quarter: 2019Q3

REPORT INFORMATION
  Report Type: Spontaneous
  Country: FR (occurrence: FR)
  Receive Date: 20190815
  Receipt Date: 20190815
  Transmission Date: 20191004
  Serious: Yes (Hospitalization)
  Sender: FDA-Public Use
  Company Number: FR-TEVA-2019-FR-1092655

PATIENT
  Age: 92 Year
  Sex: Male
  Weight: 91.1 kg

DRUGS (11)
  1. LANSOPRAZOLE. [Concomitant]
     Active Substance: LANSOPRAZOLE
  2. RAMIPRIL. [Suspect]
     Active Substance: RAMIPRIL
     Indication: CARDIOVASCULAR EVENT PROPHYLAXIS
     Dosage: 5MG
     Route: 048
  3. TIAPRIDAL [Concomitant]
     Active Substance: TIAPRIDE HYDROCHLORIDE
  4. LASILIX 40 MG, COMPRIM? S?CABLE [Suspect]
     Active Substance: FUROSEMIDE
     Indication: OEDEMA
     Dosage: 40MG
     Route: 048
  5. PREGABALINE [Concomitant]
     Active Substance: PREGABALIN
  6. BISOCE [Concomitant]
     Active Substance: BISOPROLOL
  7. LANTUS [Concomitant]
     Active Substance: INSULIN GLARGINE
  8. FUMAFER [Concomitant]
     Active Substance: FERROUS FUMARATE
  9. DAFALGAN [Concomitant]
     Active Substance: ACETAMINOPHEN
  10. LOXEN [Concomitant]
  11. DEXERYL [Concomitant]

REACTIONS (2)
  - Acute kidney injury [Recovering/Resolving]
  - Dehydration [Recovering/Resolving]

NARRATIVE: CASE EVENT DATE: 20190625
